FAERS Safety Report 17685834 (Version 1)
Quarter: 2020Q2

REPORT INFORMATION
  Report Type: Spontaneous
  Country: DE (occurrence: DE)
  Receive Date: 20200420
  Receipt Date: 20200420
  Transmission Date: 20200714
  Serious: Yes (Hospitalization)
  Sender: FDA-Public Use
  Company Number: DE-SAMSUNG BIOEPIS-SB-2020-13273

PATIENT
  Age: 50 Year
  Sex: Male
  Weight: 103 kg

DRUGS (10)
  1. PANTOPRAZOL [Concomitant]
     Active Substance: PANTOPRAZOLE SODIUM
     Indication: PRODUCT USED FOR UNKNOWN INDICATION
     Dosage: 40 MG,1-0-0-0, TABLETS
     Route: 048
  2. ONDANSETRON [Concomitant]
     Active Substance: ONDANSETRON
     Indication: PRODUCT USED FOR UNKNOWN INDICATION
     Dosage: 8 MG, NEED, UP TO 2X/DAY, TABLETS
     Route: 048
  3. TRASTUZUMAB. [Suspect]
     Active Substance: TRASTUZUMAB
     Indication: PRODUCT USED FOR UNKNOWN INDICATION
     Dosage: NK MG/KG/KG, ACCORDING TO THE SCHEME, MOST RECENTLY ON 02-JUL-2018, UNKNOWN
     Route: 042
  4. OXALIPLATIN. [Suspect]
     Active Substance: OXALIPLATIN
     Indication: PRODUCT USED FOR UNKNOWN INDICATION
     Dosage: NK MG/KG/KG, ACCORDING TO THE SCHEME, MOST RECENTLY ON 02-JUL-2018,UNKNOWN
     Route: 042
  5. FLUOROURACIL. [Suspect]
     Active Substance: FLUOROURACIL
     Indication: PRODUCT USED FOR UNKNOWN INDICATION
     Dosage: NK MG/KG/KG, ACCORDING TO THE SCHEME, MOST RECENTLY ON 02-JUL-2018, SOLUTION FOR INJECTION/INFUSION
     Route: 042
  6. DEXAMETHASON [Concomitant]
     Active Substance: DEXAMETHASONE
     Indication: PRODUCT USED FOR UNKNOWN INDICATION
     Dosage: ONLY 1-2 DAYS AFTER CHEMO, TABLETS
     Route: 048
  7. BEPANTHEN [Concomitant]
     Indication: PRODUCT USED FOR UNKNOWN INDICATION
     Dosage: UNKNOWN, NK/ML, MOUTHWASH
     Route: 048
  8. SALVIATHYMOL N [Concomitant]
     Indication: PRODUCT USED FOR UNKNOWN INDICATION
     Dosage: NK GTT, NEED, DROPS, UNKNOWN
     Route: 048
  9. NIVOLUMAB [Suspect]
     Active Substance: NIVOLUMAB
     Indication: PRODUCT USED FOR UNKNOWN INDICATION
     Dosage: NK MG/KG/KG, ACCORDING TO THE SCHEME, MOST RECENTLY ON 02-JUL-2018, UNKNOWN
     Route: 042
  10. LEUCOVORIN. [Suspect]
     Active Substance: LEUCOVORIN
     Indication: PRODUCT USED FOR UNKNOWN INDICATION
     Dosage: UNKNOWN
     Route: 042

REACTIONS (4)
  - Rash [Unknown]
  - Pyrexia [Unknown]
  - Tachycardia [Unknown]
  - Hypotension [Unknown]
